FAERS Safety Report 25184549 (Version 1)
Quarter: 2025Q2

REPORT INFORMATION
  Report Type: Spontaneous
  Country: US (occurrence: None)
  Receive Date: 20250409
  Receipt Date: 20250409
  Transmission Date: 20250716
  Serious: No
  Sender: FDA-CTU
  Company Number: None

PATIENT
  Sex: Male

DRUGS (1)
  1. CAPECITABINE [Suspect]
     Active Substance: CAPECITABINE
     Indication: Cholangiocarcinoma
     Dosage: 2500 MG TWICE A DAY ORAL
     Route: 048
     Dates: start: 20250107

REACTIONS (5)
  - Localised infection [None]
  - Blue toe syndrome [None]
  - Skin ulcer [None]
  - Blood blister [None]
  - Gait disturbance [None]
